FAERS Safety Report 8215758-3 (Version None)
Quarter: 2012Q1

REPORT INFORMATION
  Report Type: 
  Country: None (occurrence: None)
  Receive Date: 20120316
  Receipt Date: 20120306
  Transmission Date: 20120608
  Serious: Yes (Death, Hospitalization)
  Sender: FDA-Public Use
  Company Number: JP-ACTELION-A-CH2012-62362

PATIENT
  Sex: Male
  Weight: 66 kg

DRUGS (13)
  1. METHYLPREDNISOLONE SODIUM SUCCINATE [Suspect]
     Dosage: UNK
     Dates: start: 20090610, end: 20090612
  2. TRACLEER [Suspect]
     Dosage: 62.5 MG, QD
     Route: 048
     Dates: start: 20081219, end: 20081225
  3. TELMISARTAN [Concomitant]
  4. TRACLEER [Suspect]
     Indication: PULMONARY ARTERIAL HYPERTENSION
     Dosage: 125 MG, BID
     Route: 048
     Dates: start: 20090123, end: 20090718
  5. FUROSEMIDE [Concomitant]
  6. TRACLEER [Suspect]
     Dosage: 93.75 MG, BID
     Route: 048
     Dates: start: 20090109, end: 20090122
  7. ASPIRIN [Concomitant]
  8. PREDNISOLONE [Suspect]
     Indication: INTERSTITIAL LUNG DISEASE
     Dosage: UNK
     Dates: start: 20090627, end: 20090718
  9. TRACLEER [Suspect]
     Dosage: 62.5 MG, BID
     Route: 048
     Dates: start: 20081226, end: 20090108
  10. PREDNISOLONE [Suspect]
     Dosage: UNK
  11. BERAPROST SODIUM [Concomitant]
  12. METHYLPREDNISOLONE SODIUM SUCCINATE [Suspect]
     Indication: INTERSTITIAL LUNG DISEASE
     Dosage: UNK
     Dates: start: 20090210, end: 20090212
  13. OXYGEN [Concomitant]

REACTIONS (14)
  - HEPATIC FUNCTION ABNORMAL [None]
  - DEFAECATION URGENCY [None]
  - RESPIRATORY ARREST [None]
  - ALANINE AMINOTRANSFERASE INCREASED [None]
  - WHITE BLOOD CELL COUNT INCREASED [None]
  - OXYGEN SATURATION DECREASED [None]
  - RESPIRATORY DISTRESS [None]
  - INTERSTITIAL LUNG DISEASE [None]
  - ASPARTATE AMINOTRANSFERASE INCREASED [None]
  - GAMMA-GLUTAMYLTRANSFERASE INCREASED [None]
  - STOMATITIS [None]
  - DYSPNOEA [None]
  - PULMONARY ARTERIAL HYPERTENSION [None]
  - CONDITION AGGRAVATED [None]
